FAERS Safety Report 18644714 (Version 1)
Quarter: 2020Q4

REPORT INFORMATION
  Report Type: Spontaneous
  Country: US (occurrence: US)
  Receive Date: 20201221
  Receipt Date: 20201221
  Transmission Date: 20210114
  Serious: No
  Sender: FDA-Public Use
  Company Number: US-BIOHAVEN PHARMACEUTICALS-2020BHV00801

PATIENT
  Age: 7 Decade
  Sex: Female

DRUGS (6)
  1. INDERAL [Concomitant]
     Active Substance: PROPRANOLOL HYDROCHLORIDE
  2. PERCOCET [Concomitant]
     Active Substance: ACETAMINOPHEN\OXYCODONE HYDROCHLORIDE
  3. UBRELVY [Concomitant]
     Active Substance: UBROGEPANT
  4. VISTARIL [Concomitant]
     Active Substance: HYDROXYZINE PAMOATE
  5. NURTEC ODT [Suspect]
     Active Substance: RIMEGEPANT SULFATE
  6. ^OTHER MEDICATIONS^ [Concomitant]

REACTIONS (1)
  - Drug ineffective [Unknown]
